FAERS Safety Report 4760486-X (Version None)
Quarter: 2005Q3

REPORT INFORMATION
  Report Type: 
  Country: None (occurrence: None)
  Receive Date: 20050825
  Receipt Date: 20040922
  Transmission Date: 20060218
  Serious: Yes (Hospitalization)
  Sender: FDA-Public Use
  Company Number: 25199

PATIENT
  Age: 79 Year
  Sex: Female

DRUGS (2)
  1. TAMBOCOR [Suspect]
     Indication: ATRIAL FIBRILLATION
     Dosage: (100 MG,2 IN 1 DAY(S)),ORAL
     Route: 048
     Dates: start: 19950101, end: 20040902
  2. COREG [Suspect]

REACTIONS (4)
  - ASTHENIA [None]
  - CHEST PAIN [None]
  - DYSPNOEA [None]
  - MYOCARDIAL INFARCTION [None]
